FAERS Safety Report 10164397 (Version 1)
Quarter: 2014Q2

REPORT INFORMATION
  Report Type: Spontaneous
  Country: US (occurrence: US)
  Receive Date: 20140510
  Receipt Date: 20140510
  Transmission Date: 20141212
  Serious: No
  Sender: FDA-Public Use
  Company Number: US-BRISTOL-MYERS SQUIBB COMPANY-20123626

PATIENT
  Sex: Female

DRUGS (1)
  1. BYETTA PEN DISPOSABLE [Suspect]
     Dosage: MAY 2015:EXP DATE

REACTIONS (1)
  - Incorrect product storage [Unknown]
